FAERS Safety Report 10810983 (Version 2)
Quarter: 2015Q1

REPORT INFORMATION
  Report Type: Report from Study
  Country: FR (occurrence: None)
  Receive Date: 20150212
  Receipt Date: 20150320
  Transmission Date: 20150721
  Serious: No
  Sender: FDA-Public Use
  Company Number: B0967228A

PATIENT
  Age: 65 Year
  Sex: Male
  Weight: 97 kg

DRUGS (5)
  1. MARAVIROC [Suspect]
     Active Substance: MARAVIROC
     Indication: HIV INFECTION
     Dates: start: 20131113, end: 20131130
  2. TRUVADA [Suspect]
     Active Substance: EMTRICITABINE\TENOFOVIR DISOPROXIL FUMARATE
     Indication: HIV INFECTION
     Dates: start: 20131113, end: 20131130
  3. BACTRIM [Suspect]
     Active Substance: SULFAMETHOXAZOLE\TRIMETHOPRIM
     Indication: HIV INFECTION
     Dates: start: 20131113, end: 20131130
  4. PREZISTA [Suspect]
     Active Substance: DARUNAVIR ETHANOLATE
     Dates: start: 20131113, end: 20131130
  5. NORVIR [Suspect]
     Active Substance: RITONAVIR
     Dates: start: 20131113, end: 20131130

REACTIONS (4)
  - Chills [None]
  - Face oedema [None]
  - Hyperthermia [None]
  - Rash [None]

NARRATIVE: CASE EVENT DATE: 20131129
